FAERS Safety Report 22004703 (Version 1)
Quarter: 2023Q1

REPORT INFORMATION
  Report Type: Spontaneous
  Country: IT (occurrence: IT)
  Receive Date: 20230217
  Receipt Date: 20230217
  Transmission Date: 20230417
  Serious: Yes (Other)
  Sender: FDA-Public Use
  Company Number: None

PATIENT
  Age: 67 Year
  Sex: Male

DRUGS (1)
  1. DOCETAXEL [Suspect]
     Active Substance: DOCETAXEL
     Indication: Lung squamous cell carcinoma stage III
     Dosage: 120 MG
     Route: 042
     Dates: start: 20220819

REACTIONS (3)
  - Hyperbilirubinaemia [Recovered/Resolved]
  - Neutropenia [Recovered/Resolved]
  - Asthenia [Recovered/Resolved]
